FAERS Safety Report 10066185 (Version 1)
Quarter: 2014Q2

REPORT INFORMATION
  Report Type: Spontaneous
  Country: NL (occurrence: NL)
  Receive Date: 20140408
  Receipt Date: 20140408
  Transmission Date: 20141212
  Serious: Yes (Life-Threatening)
  Sender: FDA-Public Use
  Company Number: NL-009507513-1404NLD002465

PATIENT
  Age: 32 Year
  Sex: Female
  Weight: 97 kg

DRUGS (4)
  1. MERCILON [Suspect]
     Indication: PRODUCT USED FOR UNKNOWN INDICATION
     Dosage: 1 DF, QD, EXTRA INFO: VA
     Route: 048
     Dates: start: 1997, end: 20140325
  2. PROVERA [Interacting]
     Indication: AMENORRHOEA
     Dosage: 5 MG, BID, 2 TIME A DAY 1 PIECE(S)
     Route: 048
     Dates: start: 20140108
  3. DICLOFENAC SODIUM [Concomitant]
     Dosage: EXTRA INFORMATION : IF NEEDED
     Route: 048
     Dates: start: 2013
  4. ADVIL [Concomitant]
     Dosage: EXTRA INFORMATION : IF NEEDED
     Route: 048
     Dates: start: 2013

REACTIONS (2)
  - Drug interaction [Recovering/Resolving]
  - Cerebral venous thrombosis [Recovering/Resolving]
